FAERS Safety Report 5721015-7 (Version None)
Quarter: 2008Q2

REPORT INFORMATION
  Report Type: 
  Country: None (occurrence: None)
  Receive Date: 20080429
  Receipt Date: 20080421
  Transmission Date: 20081010
  Serious: Yes (Hospitalization)
  Sender: FDA-Public Use
  Company Number: SE-GENENTECH-259671

PATIENT
  Sex: Male

DRUGS (1)
  1. LUCENTIS [Suspect]
     Indication: EYE DISORDER
     Dosage: 10 MG/ML, UNK
     Dates: start: 20070201, end: 20070501

REACTIONS (1)
  - CEREBROVASCULAR ACCIDENT [None]
